FAERS Safety Report 13449040 (Version 1)
Quarter: 2017Q2

REPORT INFORMATION
  Report Type: Spontaneous
  Country: US (occurrence: US)
  Receive Date: 20170417
  Receipt Date: 20170417
  Transmission Date: 20170830
  Serious: No
  Sender: FDA-Public Use
  Company Number: US-MYLANLABS-2017M1001142

PATIENT
  Age: 70 Year
  Sex: Female
  Weight: 57.14 kg

DRUGS (6)
  1. ESTRADIOL TRANSDERMAL SYSTEM [Suspect]
     Active Substance: ESTRADIOL
     Dosage: 0.037MG/QD, CHANGES TWICE A WEEK
  2. AZOPT [Concomitant]
     Active Substance: BRINZOLAMIDE
     Indication: GLAUCOMA
     Dosage: UNK
  3. LATANOPROST. [Concomitant]
     Active Substance: LATANOPROST
     Indication: GLAUCOMA
     Dosage: UNK
  4. ESTRADIOL TRANSDERMAL SYSTEM [Suspect]
     Active Substance: ESTRADIOL
     Indication: OSTEOPOROSIS
     Dosage: 0.0375 MG, QD, CHANGE OW
     Route: 062
     Dates: start: 2015
  5. HCTZ [Concomitant]
     Active Substance: HYDROCHLOROTHIAZIDE
     Indication: HYPERTENSION
     Dosage: 12.5 MG, QD
     Route: 048
  6. LEVOTHYROXINE. [Concomitant]
     Active Substance: LEVOTHYROXINE
     Indication: HYPOTHYROIDISM
     Dosage: 25 ?G, QD
     Route: 048

REACTIONS (2)
  - Incorrect drug administration duration [Not Recovered/Not Resolved]
  - Application site urticaria [Not Recovered/Not Resolved]

NARRATIVE: CASE EVENT DATE: 201612
